FAERS Safety Report 13957397 (Version 2)
Quarter: 2025Q4

REPORT INFORMATION
  Report Type: Spontaneous
  Country: EU (occurrence: EU)
  Receive Date: 20170912
  Receipt Date: 20251119
  Transmission Date: 20260117
  Serious: Yes (Other)
  Sender: ACCORD
  Company Number: EU-ACCORD-058425

PATIENT
  Age: 21 Year
  Sex: Female

DRUGS (7)
  1. SERTRALINE [Suspect]
     Active Substance: SERTRALINE HYDROCHLORIDE
     Indication: Depressed mood
  2. PREGABALIN [Concomitant]
     Active Substance: PREGABALIN
     Indication: Epilepsy
  3. LEVETIRACETAM [Concomitant]
     Active Substance: LEVETIRACETAM
     Indication: Generalised tonic-clonic seizure
  4. CLONAZEPAM [Concomitant]
     Active Substance: CLONAZEPAM
     Indication: Generalised tonic-clonic seizure
  5. PREGABALIN [Concomitant]
     Active Substance: PREGABALIN
     Indication: Generalised tonic-clonic seizure
  6. LEVETIRACETAM [Concomitant]
     Active Substance: LEVETIRACETAM
     Indication: Epilepsy
  7. CLONAZEPAM [Concomitant]
     Active Substance: CLONAZEPAM
     Indication: Epilepsy

REACTIONS (4)
  - Asthenia [Unknown]
  - Headache [Unknown]
  - Fall [Unknown]
  - Mitochondrial toxicity [Recovering/Resolving]
